FAERS Safety Report 7057563-X (Version None)
Quarter: 2010Q4

REPORT INFORMATION
  Report Type: 
  Country: None (occurrence: None)
  Receive Date: 20101022
  Receipt Date: 20101018
  Transmission Date: 20110411
  Serious: Yes (Hospitalization)
  Sender: FDA-Public Use
  Company Number: DE-ROCHE-733514

PATIENT
  Sex: Male
  Weight: 118 kg

DRUGS (4)
  1. TOCILIZUMAB [Suspect]
     Indication: RHEUMATOID ARTHRITIS
     Route: 042
     Dates: start: 20091105, end: 20100819
  2. TOCILIZUMAB [Suspect]
     Route: 042
     Dates: start: 20100913
  3. OMEP [Concomitant]
     Indication: GASTRITIS
     Route: 048
     Dates: start: 20091026
  4. TOREM [Concomitant]
     Indication: HYPERTENSION
     Route: 048
     Dates: start: 20091026

REACTIONS (1)
  - LEUKOPENIA [None]
